FAERS Safety Report 25513793 (Version 1)
Quarter: 2025Q3

REPORT INFORMATION
  Report Type: Spontaneous
  Country: US (occurrence: US)
  Receive Date: 20250703
  Receipt Date: 20250703
  Transmission Date: 20251021
  Serious: No
  Sender: RADIUS PHARM
  Company Number: US-RADIUS HEALTH INC.-2024US009473

PATIENT
  Sex: Female

DRUGS (1)
  1. TYMLOS [Suspect]
     Active Substance: ABALOPARATIDE
     Indication: Osteoporosis
     Dosage: 80 MICROGRAM, QD
     Route: 058
     Dates: start: 20241108

REACTIONS (7)
  - Fatigue [Unknown]
  - Headache [Unknown]
  - Injection site reaction [Unknown]
  - Abdominal pain upper [Unknown]
  - Cardiac flutter [Recovered/Resolved]
  - Paranasal sinus discomfort [Recovered/Resolved]
  - Heart rate increased [Unknown]
